FAERS Safety Report 11830222 (Version 1)
Quarter: 2015Q4

REPORT INFORMATION
  Report Type: Spontaneous
  Country: IN (occurrence: IN)
  Receive Date: 20151214
  Receipt Date: 20151214
  Transmission Date: 20160305
  Serious: Yes (Death, Hospitalization)
  Sender: FDA-Public Use
  Company Number: IN-ALKEM-001371

PATIENT
  Age: 30 Year
  Sex: Female

DRUGS (2)
  1. MYCOPHENOLIC ACID. [Suspect]
     Active Substance: MYCOPHENOLIC ACID
     Indication: SYSTEMIC LUPUS ERYTHEMATOSUS
  2. PREDNISOLONE. [Suspect]
     Active Substance: PREDNISOLONE
     Indication: SYSTEMIC LUPUS ERYTHEMATOSUS
     Dosage: INITIALLY 1 MG/KG/DAY AND THEN TAPERED

REACTIONS (5)
  - Meningitis [Unknown]
  - Arthritis [Unknown]
  - Mycobacterium chelonae infection [Fatal]
  - Proteinuria [Unknown]
  - Hyponatraemia [Unknown]
